FAERS Safety Report 9481083 (Version 1)
Quarter: 2013Q3

REPORT INFORMATION
  Report Type: Spontaneous
  Country: US (occurrence: US)
  Receive Date: 20130828
  Receipt Date: 20130828
  Transmission Date: 20140515
  Serious: Yes (Hospitalization)
  Sender: FDA-Public Use
  Company Number: US-AMGEN-KDL154303

PATIENT
  Age: 78 Year
  Sex: Male

DRUGS (2)
  1. ENBREL [Suspect]
     Indication: RHEUMATOID ARTHRITIS
     Dosage: 25 MG, 2 TIMES/WK
     Route: 058
     Dates: start: 20001216, end: 20050713
  2. METHOTREXATE [Concomitant]

REACTIONS (10)
  - Atrial thrombosis [Recovered/Resolved]
  - Hyperhidrosis [Recovered/Resolved]
  - Escherichia infection [Recovered/Resolved]
  - Localised infection [Recovered/Resolved]
  - Dyspnoea [Unknown]
  - Dizziness [Recovered/Resolved]
  - Pyrexia [Recovered/Resolved]
  - Rheumatoid arthritis [Unknown]
  - Condition aggravated [Unknown]
  - Diverticulitis [Unknown]
